FAERS Safety Report 6654712-X (Version None)
Quarter: 2010Q1

REPORT INFORMATION
  Report Type: 
  Country: None (occurrence: None)
  Receive Date: 20100326
  Receipt Date: 20100317
  Transmission Date: 20100710
  Serious: Yes (Hospitalization)
  Sender: FDA-Public Use
  Company Number: FR-ABBOTT-10P-056-0632996-00

PATIENT
  Sex: Male

DRUGS (2)
  1. HUMIRA [Suspect]
     Indication: POLYARTHRITIS
     Dates: start: 20090410, end: 20091226
  2. NOVATREX [Suspect]
     Indication: POLYARTHRITIS
     Route: 048
     Dates: start: 20080927, end: 20091226

REACTIONS (2)
  - BORDETELLA TEST POSITIVE [None]
  - BRONCHITIS [None]
